FAERS Safety Report 6271424-5 (Version None)
Quarter: 2009Q3

REPORT INFORMATION
  Report Type: 
  Country: None (occurrence: None)
  Receive Date: 20090717
  Receipt Date: 20070807
  Transmission Date: 20100115
  Serious: Yes (Hospitalization, Other)
  Sender: FDA-Public Use
  Company Number: US-ASTRAZENECA-2006UW07848

PATIENT
  Age: 587 Month
  Sex: Female
  Weight: 60.8 kg

DRUGS (16)
  1. SEROQUEL [Suspect]
     Indication: DEPRESSION
     Dosage: 25 TO 100 MG
     Route: 048
     Dates: start: 20030601, end: 20070101
  2. SEROQUEL [Suspect]
     Indication: INSOMNIA
     Dosage: 25 TO 100 MG
     Route: 048
     Dates: start: 20030601, end: 20070101
  3. SEROQUEL [Suspect]
     Indication: MAJOR DEPRESSION
     Dosage: 25 TO 100 MG
     Route: 048
     Dates: start: 20030601, end: 20070101
  4. SEROQUEL [Suspect]
     Indication: ANXIETY
     Dosage: 25 TO 100 MG
     Route: 048
     Dates: start: 20030601, end: 20070101
  5. SEROQUEL [Suspect]
     Dosage: 25 MG-100 MG, FLUCTUATING
     Route: 048
     Dates: start: 20030602
  6. SEROQUEL [Suspect]
     Dosage: 25 MG-100 MG, FLUCTUATING
     Route: 048
     Dates: start: 20030602
  7. SEROQUEL [Suspect]
     Dosage: 25 MG-100 MG, FLUCTUATING
     Route: 048
     Dates: start: 20030602
  8. SEROQUEL [Suspect]
     Dosage: 25 MG-100 MG, FLUCTUATING
     Route: 048
     Dates: start: 20030602
  9. LEXAPRO [Concomitant]
     Indication: DEPRESSION
     Dosage: 10-20 MG, FLUCTUATING
     Route: 048
     Dates: start: 20050630, end: 20070823
  10. LEXAPRO [Concomitant]
  11. XANAX [Concomitant]
     Dosage: 0.25 MG - 0.5 MG
     Dates: start: 19941121
  12. XANAX [Concomitant]
  13. VALIUM [Concomitant]
     Indication: DEPRESSION
     Dosage: 5 MG-40 MG,FLUCTUATING
     Route: 048
     Dates: start: 19881101
  14. LOPID [Concomitant]
     Indication: HYPERTRIGLYCERIDAEMIA
     Route: 048
     Dates: start: 20051012
  15. TYLOX [Concomitant]
     Indication: ABDOMINAL PAIN
     Dosage: 500 MG-5 MG CAPSCULE EVERY SIX HOURS
     Route: 048
     Dates: start: 20060815, end: 20070326
  16. PHENERGAN [Concomitant]
     Indication: BRONCHITIS
     Route: 048
     Dates: start: 20050509

REACTIONS (5)
  - ALCOHOLIC PANCREATITIS [None]
  - BILIARY DYSKINESIA [None]
  - CHOLECYSTITIS [None]
  - PANCREATITIS [None]
  - PANCREATITIS ACUTE [None]
